FAERS Safety Report 8999794 (Version 1)
Quarter: 2013Q1

REPORT INFORMATION
  Report Type: Spontaneous
  Country: CH (occurrence: CH)
  Receive Date: 20130102
  Receipt Date: 20130102
  Transmission Date: 20140127
  Serious: Yes (Hospitalization)
  Sender: FDA-Public Use
  Company Number: CH-BAYER-2012-134404

PATIENT
  Age: 84 Year
  Sex: Male
  Weight: 64 kg

DRUGS (13)
  1. ASPIRIN CARDIO [Suspect]
     Indication: ARTERIOSCLEROSIS CORONARY ARTERY
     Dosage: 100 MG, QD
     Route: 048
  2. MARCOUMAR [Interacting]
     Indication: ATRIAL FIBRILLATION
     Dosage: 3 MG, PRN
     Route: 048
     Dates: end: 20121128
  3. MARCOUMAR [Interacting]
     Indication: ATRIAL FLUTTER
  4. TOREM [Suspect]
     Indication: ESSENTIAL HYPERTENSION
     Dosage: 250 MG, QD
     Route: 048
     Dates: start: 2006, end: 20121128
  5. METOLAZONE [Suspect]
     Indication: ESSENTIAL HYPERTENSION
     Dosage: 7.5 MG, QD
     Route: 048
     Dates: end: 20121127
  6. TRIATEC [Concomitant]
     Dosage: 10 MG, QD
     Route: 048
     Dates: start: 2006, end: 20121204
  7. BELOC [Concomitant]
     Dosage: 25 MG, QD
     Route: 048
  8. SORTIS [Concomitant]
     Dosage: 40 MG, QD
     Route: 048
     Dates: start: 2006
  9. PANTOZOL [Concomitant]
     Dosage: 40 MG, QD
     Route: 048
  10. PRADIF [Concomitant]
     Dosage: 400 ?G, QD
     Route: 048
  11. BLOOD CELLS, PACKED HUMAN [Concomitant]
  12. TORASEMID [Concomitant]
     Dosage: UNK
     Dates: end: 20121128
  13. PHENPROCOUMON [Concomitant]
     Dosage: UNK
     Dates: end: 20121130

REACTIONS (5)
  - Renal failure chronic [Recovering/Resolving]
  - Hyperkalaemia [Recovered/Resolved]
  - Gastrointestinal haemorrhage [Recovered/Resolved]
  - Haemorrhagic anaemia [Recovering/Resolving]
  - Melaena [Recovered/Resolved]
